FAERS Safety Report 20657392 (Version 1)
Quarter: 2022Q1

REPORT INFORMATION
  Report Type: Spontaneous
  Country: US (occurrence: US)
  Receive Date: 20220331
  Receipt Date: 20220331
  Transmission Date: 20220424
  Serious: No
  Sender: FDA-Public Use
  Company Number: US-TEVA-2022-US-2015924

PATIENT
  Sex: Female

DRUGS (4)
  1. AJOVY [Suspect]
     Active Substance: FREMANEZUMAB-VFRM
     Indication: Migraine
     Dosage: 225 MG / 1.5 ML
     Route: 058
  2. ADVIL [Concomitant]
     Active Substance: IBUPROFEN
  3. NURTEC ODT [Concomitant]
     Active Substance: RIMEGEPANT SULFATE
  4. VITAMINS [Concomitant]
     Active Substance: VITAMINS

REACTIONS (9)
  - Fatigue [Not Recovered/Not Resolved]
  - Underdose [Unknown]
  - Device malfunction [Unknown]
  - Injection site extravasation [Unknown]
  - Ocular discomfort [Unknown]
  - Migraine [Unknown]
  - Injection site haemorrhage [Unknown]
  - Circumstance or information capable of leading to device use error [Unknown]
  - Accidental exposure to product [Unknown]

NARRATIVE: CASE EVENT DATE: 20220217
